FAERS Safety Report 5397890-5 (Version None)
Quarter: 2007Q3

REPORT INFORMATION
  Report Type: 
  Country: None (occurrence: None)
  Receive Date: 20070724
  Receipt Date: 20070718
  Transmission Date: 20080115
  Serious: Yes (Hospitalization)
  Sender: FDA-Public Use
  Company Number: 2007BI013501

PATIENT
  Age: 24 Year
  Sex: Female

DRUGS (1)
  1. NATALIZUMAB [Suspect]
     Indication: MULTIPLE SCLEROSIS
     Dosage: 300 MG; QM; IV
     Route: 011
     Dates: start: 20070123

REACTIONS (3)
  - DEHYDRATION [None]
  - MALNUTRITION [None]
  - MULTIPLE SCLEROSIS [None]
